FAERS Safety Report 8113942-0 (Version None)
Quarter: 2012Q1

REPORT INFORMATION
  Report Type: 
  Country: None (occurrence: None)
  Receive Date: 20120203
  Receipt Date: 20120201
  Transmission Date: 20120608
  Serious: Yes (Life-Threatening, Hospitalization, Other)
  Sender: FDA-Public Use
  Company Number: RU-ABBOTT-12P-251-0898836-00

PATIENT
  Sex: Male
  Weight: 36 kg

DRUGS (7)
  1. SEVOFLURANE [Suspect]
     Indication: DENTAL CARE
  2. SUPRASTIN [Concomitant]
     Indication: PREMEDICATION
     Route: 042
     Dates: start: 20120130, end: 20120130
  3. FENTANYL CITRATE [Concomitant]
     Indication: PRODUCT USED FOR UNKNOWN INDICATION
     Route: 042
  4. PROPOFOL [Concomitant]
     Indication: ANAESTHESIA
     Dosage: 3 MG/KG/HOUR
     Route: 042
     Dates: start: 20120130, end: 20120130
  5. FULSED [Concomitant]
     Indication: PREMEDICATION
     Dosage: 3 MG DAILY
     Route: 042
     Dates: start: 20120130, end: 20120130
  6. SEVOFLURANE [Suspect]
     Indication: GENERAL ANAESTHESIA
     Dosage: 3 VOL %
     Route: 055
     Dates: start: 20120130, end: 20120130
  7. ATROPINE [Concomitant]
     Indication: PREMEDICATION
     Route: 042
     Dates: start: 20120130, end: 20120130

REACTIONS (4)
  - HYPERTHERMIA MALIGNANT [None]
  - CARDIOVASCULAR DISORDER [None]
  - RESPIRATORY ALKALOSIS [None]
  - LIVEDO RETICULARIS [None]
